FAERS Safety Report 4517803-5 (Version None)
Quarter: 2004Q4

REPORT INFORMATION
  Report Type: 
  Country: None (occurrence: None)
  Receive Date: 20041203
  Receipt Date: 20041123
  Transmission Date: 20050328
  Serious: Yes (Other)
  Sender: FDA-Public Use
  Company Number: US-MERCK-0411USA03695

PATIENT
  Age: 76 Year
  Sex: Male

DRUGS (12)
  1. ZOCOR [Suspect]
     Indication: BLOOD CHOLESTEROL INCREASED
     Route: 048
     Dates: end: 20040101
  2. ZOCOR [Suspect]
     Route: 048
     Dates: start: 20040101, end: 20040101
  3. ZETIA [Suspect]
     Indication: BLOOD CHOLESTEROL INCREASED
     Route: 048
     Dates: start: 20040801
  4. GLUCOSAMINE [Concomitant]
     Route: 065
  5. LISINOPRIL [Concomitant]
     Route: 065
  6. IBUPROFEN [Concomitant]
     Route: 065
  7. VITAMINS (UNSPECIFIED) [Concomitant]
     Route: 065
  8. VITAMIN E [Concomitant]
     Route: 065
  9. ASCORBIC ACID [Concomitant]
     Route: 065
  10. DANAPAROID SODIUM [Concomitant]
     Route: 065
  11. GLUCOSAMINE SULFATE [Concomitant]
     Route: 065
  12. DIMETHYL SULFONE AND GLUCOSAMINE [Concomitant]
     Route: 065

REACTIONS (4)
  - ARTHROPATHY [None]
  - BLOOD CREATINE PHOSPHOKINASE INCREASED [None]
  - BLOOD CREATINE PHOSPHOKINASE MB INCREASED [None]
  - MYALGIA [None]
